FAERS Safety Report 23529280 (Version 1)
Quarter: 2024Q1

REPORT INFORMATION
  Report Type: Spontaneous
  Country: CN (occurrence: CN)
  Receive Date: 20240216
  Receipt Date: 20240216
  Transmission Date: 20240410
  Serious: Yes (Hospitalization)
  Sender: FDA-Public Use
  Company Number: CN-RDY-LIT/CHN/24/0002658

PATIENT
  Age: 26 Year
  Sex: Female

DRUGS (5)
  1. CARBOPROST TROMETHAMINE [Suspect]
     Active Substance: CARBOPROST TROMETHAMINE
     Indication: Uterine hypotonus
     Route: 030
  2. CARBOPROST TROMETHAMINE [Suspect]
     Active Substance: CARBOPROST TROMETHAMINE
     Indication: Vaginal haemorrhage
  3. OXYTOCIN [Suspect]
     Active Substance: OXYTOCIN
     Indication: Vaginal haemorrhage
     Dosage: 20U
     Route: 030
  4. OXYTOCIN [Suspect]
     Active Substance: OXYTOCIN
     Dosage: 20U
     Route: 042
  5. MAGNESIUM SULFATE [Concomitant]
     Active Substance: MAGNESIUM SULFATE\MAGNESIUM SULFATE HEPTAHYDRATE
     Indication: Tocolysis

REACTIONS (1)
  - Drug ineffective [Unknown]
